FAERS Safety Report 8998396 (Version 1)
Quarter: 2013Q1

REPORT INFORMATION
  Report Type: Spontaneous
  Country: FR (occurrence: FR)
  Receive Date: 20130103
  Receipt Date: 20130103
  Transmission Date: 20140127
  Serious: Yes (Other)
  Sender: FDA-Public Use
  Company Number: FR-PFIZER INC-2012332627

PATIENT
  Age: 15 Year
  Sex: Female

DRUGS (2)
  1. RIFAMPICIN [Suspect]
     Indication: TUBERCULOSIS
     Dosage: UNK
  2. ISONIAZID [Suspect]
     Indication: TUBERCULOSIS
     Dosage: UNK

REACTIONS (1)
  - Drug resistance [Unknown]
